FAERS Safety Report 4329748-4 (Version None)
Quarter: 2004Q2

REPORT INFORMATION
  Report Type: 
  Country: None (occurrence: None)
  Receive Date: 20040401
  Receipt Date: 20030819
  Transmission Date: 20050107
  Serious: Yes (Hospitalization)
  Sender: FDA-Public Use
  Company Number: JP-GLAXOSMITHKLINE-B0307429A

PATIENT
  Age: 68 Year
  Sex: Female

DRUGS (7)
  1. ZOVIRAX [Suspect]
     Indication: HERPES ZOSTER
     Dosage: 400MG PER DAY
     Route: 048
     Dates: start: 20030520, end: 20030521
  2. ALLOPURINOL [Concomitant]
     Indication: HYPERURICAEMIA
     Dosage: 100MG PER DAY
     Route: 048
  3. PRECIPITATED CALCIUM CARBONATE [Concomitant]
     Indication: HYPERPHOSPHATAEMIA
     Dosage: 1G PER DAY
     Route: 048
  4. TRIMEBUTINE MALEATE [Concomitant]
     Indication: GASTROENTERITIS
     Dosage: 300MG PER DAY
     Route: 048
  5. CALCIUM CARBONATE [Concomitant]
     Indication: GASTROENTERITIS
     Dosage: 2G PER DAY
     Route: 048
  6. SENNOSIDE [Concomitant]
     Indication: CONSTIPATION
     Dosage: 3UNIT PER DAY
     Route: 048
  7. HEMODIALYSIS [Concomitant]

REACTIONS (5)
  - ANOREXIA [None]
  - HAEMODIALYSIS [None]
  - MALAISE [None]
  - NAUSEA [None]
  - VOMITING [None]
